FAERS Safety Report 9538929 (Version 1)
Quarter: 2013Q3

REPORT INFORMATION
  Report Type: Spontaneous
  Country: US (occurrence: US)
  Receive Date: 20130920
  Receipt Date: 20130920
  Transmission Date: 20140515
  Serious: No
  Sender: FDA-Public Use
  Company Number: US-BAYER-2013-113930

PATIENT
  Age: 75 Year
  Sex: Female
  Weight: 66 kg

DRUGS (3)
  1. ALEVE TABLET [Suspect]
     Indication: ARTHRITIS
     Dosage: 1 DF, BID
     Route: 048
     Dates: start: 201306
  2. FISH OIL [Concomitant]
  3. ONE A DAY WOMEN^S [Concomitant]

REACTIONS (1)
  - Incorrect drug administration duration [None]
